FAERS Safety Report 22652099 (Version 3)
Quarter: 2025Q2

REPORT INFORMATION
  Report Type: Spontaneous
  Country: US (occurrence: US)
  Receive Date: 20230628
  Receipt Date: 20250408
  Transmission Date: 20250717
  Serious: No
  Sender: SANOFI AVENTIS
  Company Number: US-SA-SAC20230626000952

PATIENT
  Age: 42 Year
  Sex: Female
  Weight: 136.07 kg

DRUGS (5)
  1. DUPIXENT [Suspect]
     Active Substance: DUPILUMAB
     Indication: Dermatitis atopic
     Dosage: 300 MG, QOW
     Route: 058
     Dates: start: 20190625
  2. VITAMIN D [Concomitant]
     Active Substance: VITAMIN D NOS
  3. ADBRY [Concomitant]
     Active Substance: TRALOKINUMAB-LDRM
  4. HYDROCHLOROTHIAZIDE [Concomitant]
     Active Substance: HYDROCHLOROTHIAZIDE
  5. BIOTIN [Concomitant]
     Active Substance: BIOTIN

REACTIONS (4)
  - Skin fissures [Not Recovered/Not Resolved]
  - Dry skin [Not Recovered/Not Resolved]
  - Drug intolerance [Not Recovered/Not Resolved]
  - Eczema [Recovered/Resolved]

NARRATIVE: CASE EVENT DATE: 20230401
